FAERS Safety Report 23865152 (Version 1)
Quarter: 2024Q2

REPORT INFORMATION
  Report Type: Spontaneous
  Country: US (occurrence: US)
  Receive Date: 20240517
  Receipt Date: 20240517
  Transmission Date: 20240716
  Serious: No
  Sender: FDA-Public Use
  Company Number: US-009507513-2404USA010710

PATIENT
  Sex: Male

DRUGS (4)
  1. EMEND [Suspect]
     Active Substance: APREPITANT
     Indication: Nausea
     Dosage: UNK
  2. EMEND [Suspect]
     Active Substance: APREPITANT
     Indication: Vomiting
  3. EMEND [Suspect]
     Active Substance: APREPITANT
     Indication: Nausea
     Dosage: UNK
     Route: 048
  4. EMEND [Suspect]
     Active Substance: APREPITANT
     Indication: Vomiting

REACTIONS (1)
  - Off label use [Unknown]
